FAERS Safety Report 17966870 (Version 3)
Quarter: 2020Q3

REPORT INFORMATION
  Report Type: Spontaneous
  Country: US (occurrence: US)
  Receive Date: 20200701
  Receipt Date: 20200912
  Transmission Date: 20201103
  Serious: Yes (Death, Hospitalization, Other)
  Sender: FDA-Public Use
  Company Number: US-AMGEN-USASP2020100649

PATIENT
  Age: 90 Year
  Sex: Male

DRUGS (10)
  1. NPLATE [Suspect]
     Active Substance: ROMIPLOSTIM
     Dosage: 145 MICROGRAM, QWK
     Route: 058
     Dates: start: 20200521
  2. NPLATE [Suspect]
     Active Substance: ROMIPLOSTIM
     Dosage: 1 MICROGRAM/KILOGRAM, QWK
     Route: 058
     Dates: end: 20200521
  3. NPLATE [Suspect]
     Active Substance: ROMIPLOSTIM
     Dosage: 70 MICROGRAM, QWK
     Route: 058
     Dates: start: 20200319
  4. NPLATE [Suspect]
     Active Substance: ROMIPLOSTIM
     Indication: IMMUNE THROMBOCYTOPENIA
     Dosage: UNK
     Route: 058
     Dates: start: 20170517
  5. NPLATE [Suspect]
     Active Substance: ROMIPLOSTIM
     Dosage: 70 MICROGRAM, QWK
     Route: 058
     Dates: start: 20200416
  6. NPLATE [Suspect]
     Active Substance: ROMIPLOSTIM
     Dosage: 145 MICROGRAM, QWK
     Route: 058
     Dates: start: 20200423
  7. NPLATE [Suspect]
     Active Substance: ROMIPLOSTIM
     Dosage: 75 MICROGRAM, QWK
     Route: 058
     Dates: start: 20200514
  8. NPLATE [Suspect]
     Active Substance: ROMIPLOSTIM
     Dosage: 35?75 MICROGRAM, WEEKLY
     Route: 058
     Dates: start: 20170613, end: 20170901
  9. NPLATE [Suspect]
     Active Substance: ROMIPLOSTIM
     Dosage: 140 MICROGRAM, QWK
     Route: 058
     Dates: start: 20200226
  10. NPLATE [Suspect]
     Active Substance: ROMIPLOSTIM
     Dosage: 140 MICROGRAM, QWK
     Route: 058
     Dates: start: 20200326

REACTIONS (11)
  - Cholangitis [Unknown]
  - Platelet count increased [Unknown]
  - Atrial fibrillation [Unknown]
  - Pleural effusion [Unknown]
  - Electrocardiogram QT prolonged [Unknown]
  - Feeling hot [Unknown]
  - Platelet count decreased [Unknown]
  - Pancreatitis acute [Unknown]
  - Myocardial infarction [Fatal]
  - Ventricular extrasystoles [Unknown]
  - Small airways disease [Unknown]

NARRATIVE: CASE EVENT DATE: 2020
